FAERS Safety Report 17706430 (Version 1)
Quarter: 2020Q2

REPORT INFORMATION
  Report Type: Spontaneous
  Country: CH (occurrence: CH)
  Receive Date: 20200424
  Receipt Date: 20200424
  Transmission Date: 20200714
  Serious: Yes (Hospitalization, Other)
  Sender: FDA-Public Use
  Company Number: CH-PFIZER INC-2020161816

PATIENT
  Age: 50 Year
  Sex: Male

DRUGS (12)
  1. STILNOX [Concomitant]
     Active Substance: ZOLPIDEM TARTRATE
     Dosage: 10 MG, 1X/DAY (AT BEDTIME)
     Route: 048
  2. MELATONINE [Interacting]
     Active Substance: MELATONIN
     Dosage: 3 MG, 1X/DAY (AT BEDTIME)
     Route: 048
  3. OMEPRAZOLE. [Interacting]
     Active Substance: OMEPRAZOLE
     Dosage: 20 MG, 1X/DAY IN THE MORNING
     Route: 048
  4. DEPAKINE CHRONO [Suspect]
     Active Substance: VALPROATE SODIUM
     Dosage: 1000 MG, 2X/DAY (MORNING, EVENING)
     Route: 048
  5. RISPERDAL [Suspect]
     Active Substance: RISPERIDONE
     Dosage: 0.75 MG, DAILY(0.5-0-0.25)
     Route: 060
  6. TEMESTA EXPIDET [Suspect]
     Active Substance: LORAZEPAM
     Dosage: 5 MG, 1X/DAY AT NOON
     Route: 060
  7. IMOVANE [Suspect]
     Active Substance: ZOPICLONE
     Dosage: AT BEDTIME
     Route: 048
  8. SERTRALINE HCL [Suspect]
     Active Substance: SERTRALINE HYDROCHLORIDE
     Dosage: 50 MG, 2X/DAY (MORNING, EVENING)
     Route: 048
  9. KEPPRA [Suspect]
     Active Substance: LEVETIRACETAM
     Dosage: 1500 MG, 2X/DAY (MORNING, EVENING)
     Route: 048
  10. SEROQUEL [Suspect]
     Active Substance: QUETIAPINE FUMARATE
     Dosage: 325 MG, DAILY (150-25-150)
     Route: 048
  11. TEMESTA EXPIDET [Suspect]
     Active Substance: LORAZEPAM
     Dosage: 5 MG, 1X/DAY AT NOON
     Route: 048
  12. RIVOTRIL [Concomitant]
     Active Substance: CLONAZEPAM
     Dosage: 2 MG, DAILY(1-0.5-0.5)
     Route: 048

REACTIONS (5)
  - Product use issue [Unknown]
  - Inappropriate antidiuretic hormone secretion [Recovering/Resolving]
  - Hyponatraemia [Recovering/Resolving]
  - Drug interaction [Unknown]
  - Off label use [Unknown]

NARRATIVE: CASE EVENT DATE: 20200322
